FAERS Safety Report 4546494-2 (Version None)
Quarter: 2005Q1

REPORT INFORMATION
  Report Type: 
  Country: None (occurrence: None)
  Receive Date: 20050106
  Receipt Date: 20040802
  Transmission Date: 20050727
  Serious: Yes (Life-Threatening, Hospitalization)
  Sender: FDA-Public Use
  Company Number: 2004-03363

PATIENT
  Sex: Female

DRUGS (3)
  1. BUPROPION HCL [Suspect]
     Indication: DRUG USE FOR UNKNOWN INDICATION
     Route: 048
     Dates: start: 20040601
  2. LAMISIL [Concomitant]
  3. ALLOPURINOL [Concomitant]

REACTIONS (16)
  - CARDIAC DISORDER [None]
  - DERMATITIS EXFOLIATIVE [None]
  - DISCOMFORT [None]
  - ILL-DEFINED DISORDER [None]
  - INJURY [None]
  - MEDICATION ERROR [None]
  - OEDEMA PERIPHERAL [None]
  - PAIN [None]
  - RASH ERYTHEMATOUS [None]
  - RASH PUSTULAR [None]
  - RESPIRATORY DISORDER [None]
  - SKIN EXFOLIATION [None]
  - SKIN LESION [None]
  - SKIN REACTION [None]
  - SLEEP DISORDER [None]
  - SWOLLEN TONGUE [None]
